FAERS Safety Report 6766735-0 (Version None)
Quarter: 2010Q2

REPORT INFORMATION
  Report Type: 
  Country: None (occurrence: None)
  Receive Date: 20100611
  Receipt Date: 20100607
  Transmission Date: 20101027
  Serious: Yes (Hospitalization)
  Sender: FDA-Public Use
  Company Number: US-ELI_LILLY_AND_COMPANY-US200906005605

PATIENT
  Age: 57 Year
  Sex: Female
  Weight: 95.238 kg

DRUGS (16)
  1. BYETTA [Suspect]
     Dosage: UNK, UNKNOWN
     Dates: start: 20071129, end: 20080125
  2. INSULIN [Concomitant]
     Dates: start: 20060101, end: 20080101
  3. METFORMIN [Concomitant]
     Dosage: UNK, UNKNOWN
     Route: 048
     Dates: start: 20060101, end: 20080101
  4. TYLENOL                                 /SCH/ [Concomitant]
     Indication: HEADACHE
     Dosage: UNK, AS NEEDED
  5. HYDROCORTISONE [Concomitant]
     Dosage: 50 MG, 2/D
     Route: 048
     Dates: start: 20080101
  6. HYDROCORTISONE [Concomitant]
     Dosage: 40 MG, 2/D
     Route: 042
     Dates: start: 20080401
  7. HYDROCORTISONE [Concomitant]
     Dosage: 20 MG, 2/D
     Dates: start: 20080601
  8. COUMADIN [Concomitant]
     Dosage: 3 MG, DAILY (1/D)
     Dates: end: 20080301
  9. COUMADIN [Concomitant]
     Dosage: 5 MG, DAILY (1/D)
     Dates: start: 20080301
  10. COUMADIN [Concomitant]
     Dosage: 6 MG, DAILY (1/D)
     Dates: start: 20080101, end: 20080401
  11. COUMADIN [Concomitant]
     Dosage: 5 MG, DAILY (1/D)
     Dates: start: 20080401
  12. FLORINEF [Concomitant]
     Dosage: 1 MG, DAILY (1/D)
  13. LANTUS [Concomitant]
     Dosage: UNK, UNKNOWN
  14. LANTUS [Concomitant]
     Dosage: 15 U, EACH EVENING
     Route: 058
     Dates: start: 20080601
  15. STARLIX [Concomitant]
     Dosage: UNK, UNKNOWN
  16. LASIX [Concomitant]
     Dosage: 40 MG, UNK
     Dates: start: 20080301

REACTIONS (5)
  - GASTRITIS [None]
  - OFF LABEL USE [None]
  - PANCREATITIS ACUTE [None]
  - RENAL FAILURE [None]
  - WEIGHT DECREASED [None]
